FAERS Safety Report 25859188 (Version 2)
Quarter: 2025Q3

REPORT INFORMATION
  Report Type: Spontaneous
  Country: CA (occurrence: CA)
  Receive Date: 20250929
  Receipt Date: 20250929
  Transmission Date: 20251021
  Serious: Yes (Other)
  Sender: PFIZER
  Company Number: CA-PFIZER INC-202500037947

PATIENT
  Age: 53 Year
  Sex: Female
  Weight: 103.9 kg

DRUGS (5)
  1. IXIFI [Suspect]
     Active Substance: INFLIXIMAB-QBTX
     Indication: Crohn^s disease
     Route: 042
     Dates: start: 20250516
  2. IXIFI [Suspect]
     Active Substance: INFLIXIMAB-QBTX
     Route: 042
  3. IXIFI [Suspect]
     Active Substance: INFLIXIMAB-QBTX
     Route: 042
     Dates: start: 20250808
  4. IXIFI [Suspect]
     Active Substance: INFLIXIMAB-QBTX
     Route: 042
     Dates: start: 20250919
  5. APO DOXY [DOXYCYCLINE HYDROCHLORIDE] [Concomitant]
     Indication: Hidradenitis
     Dosage: UNK, 1X/DAY
     Dates: start: 20250915

REACTIONS (9)
  - Genital cyst [Recovered/Resolved]
  - Fatigue [Unknown]
  - Cardiac murmur [Unknown]
  - Bone pain [Unknown]
  - Oral candidiasis [Recovering/Resolving]
  - Nasopharyngitis [Recovering/Resolving]
  - Off label use [Unknown]
  - Rhinorrhoea [Recovering/Resolving]
  - Pharyngeal paraesthesia [Recovering/Resolving]

NARRATIVE: CASE EVENT DATE: 20250501
